FAERS Safety Report 8305113-X (Version None)
Quarter: 2012Q2

REPORT INFORMATION
  Report Type: 
  Country: None (occurrence: None)
  Receive Date: 20120423
  Receipt Date: 20120413
  Transmission Date: 20120825
  Serious: Yes (Hospitalization)
  Sender: FDA-Public Use
  Company Number: HN-ASTRAZENECA-2012SE24490

PATIENT
  Age: 40 Year
  Sex: Female

DRUGS (1)
  1. DIPRIVAN [Suspect]
     Indication: SEDATION
     Route: 040
     Dates: start: 20120113, end: 20120113

REACTIONS (2)
  - PNEUMONIA [None]
  - SEPTIC SHOCK [None]
